FAERS Safety Report 15557520 (Version 4)
Quarter: 2019Q1

REPORT INFORMATION
  Report Type: Report from Study
  Country: None (occurrence: CO)
  Receive Date: 20181027
  Receipt Date: 20190117
  Transmission Date: 20190417
  Serious: Yes (Hospitalization)
  Sender: FDA-Public Use
  Company Number: CO-ABBVIE-18S-036-2528676-00

PATIENT
  Age: 67 Year
  Sex: Male
  Weight: 69 kg

DRUGS (1)
  1. ZEMPLAR [Suspect]
     Active Substance: PARICALCITOL
     Indication: HYPERPARATHYROIDISM SECONDARY
     Dosage: POSTDIALYSIS
     Route: 042
     Dates: start: 20180612, end: 20180612

REACTIONS (12)
  - Osteomyelitis [Unknown]
  - Pneumonia [Unknown]
  - Pulmonary oedema [Recovering/Resolving]
  - Infection [Recovering/Resolving]
  - Arrhythmia [Unknown]
  - Infected fistula [Unknown]
  - Inflammation [Recovering/Resolving]
  - Cerebral thrombosis [Unknown]
  - Infection [Unknown]
  - Disorientation [Unknown]
  - Malaise [Recovering/Resolving]
  - Neck pain [Unknown]

NARRATIVE: CASE EVENT DATE: 2018
